FAERS Safety Report 11582667 (Version 1)
Quarter: 2015Q4

REPORT INFORMATION
  Report Type: Spontaneous
  Country: US (occurrence: US)
  Receive Date: 20151001
  Receipt Date: 20151001
  Transmission Date: 20160304
  Serious: Yes (Other)
  Sender: FDA-Public Use
  Company Number: US-ROCHE-641414

PATIENT
  Age: 49 Year
  Sex: Female

DRUGS (5)
  1. PEGASYS [Suspect]
     Active Substance: PEGINTERFERON ALFA-2A
     Indication: HEPATITIS C
     Dosage: FORM: PRE-FILLED SYRINGE;
     Route: 058
  2. RIBAVIRIN. [Suspect]
     Active Substance: RIBAVIRIN
     Indication: HEPATITIS C
     Dosage: FORM: PILLS
     Route: 065
  3. PRILOSEC [Concomitant]
     Active Substance: OMEPRAZOLE MAGNESIUM
     Route: 065
  4. COPEGUS [Suspect]
     Active Substance: RIBAVIRIN
     Indication: HEPATITIS C
     Dosage: DIVIDED DOSES;
     Route: 048
  5. RIBAVIRIN. [Suspect]
     Active Substance: RIBAVIRIN
     Indication: HEPATITIS C
     Dosage: FORM: PILLS
     Route: 065

REACTIONS (25)
  - Gingival pain [Unknown]
  - Chapped lips [Unknown]
  - Diarrhoea [Not Recovered/Not Resolved]
  - Nausea [Unknown]
  - White blood cell count decreased [Unknown]
  - Red blood cell count decreased [Unknown]
  - Diarrhoea [Not Recovered/Not Resolved]
  - Anaemia [Unknown]
  - Chest pain [Unknown]
  - Dry mouth [Unknown]
  - Vision blurred [Unknown]
  - Antipsychotic drug level increased [Unknown]
  - Oropharyngeal pain [Unknown]
  - Pain in extremity [Unknown]
  - Headache [Unknown]
  - Blood glucose increased [Unknown]
  - Product counterfeit [Unknown]
  - Abdominal pain upper [Not Recovered/Not Resolved]
  - Asthenia [Unknown]
  - Injection site reaction [Unknown]
  - Pain [Unknown]
  - Dehydration [Unknown]
  - Mental disorder [Unknown]
  - Foaming at mouth [Unknown]
  - Dizziness [Not Recovered/Not Resolved]

NARRATIVE: CASE EVENT DATE: 20090731
